FAERS Safety Report 4318146-5 (Version None)
Quarter: 2004Q1

REPORT INFORMATION
  Report Type: 
  Country: None (occurrence: None)
  Receive Date: 20040317
  Receipt Date: 20031218
  Transmission Date: 20041129
  Serious: Yes (Other)
  Sender: FDA-Public Use
  Company Number: DE-GLAXOSMITHKLINE-B0318078A

PATIENT
  Age: 56 Year
  Sex: Female

DRUGS (3)
  1. PAROXETINE HCL [Suspect]
     Indication: VERTIGO
     Route: 048
  2. SODIUM CHLORIDE INJ [Concomitant]
     Dates: start: 20031201
  3. LEVOTHYROXINE SODIUM [Concomitant]
     Indication: AUTOIMMUNE THYROIDITIS
     Route: 048

REACTIONS (13)
  - AMNESIA [None]
  - APATHY [None]
  - BACK PAIN [None]
  - DIARRHOEA [None]
  - DRUG WITHDRAWAL SYNDROME [None]
  - DYSSOMNIA [None]
  - HALLUCINATION [None]
  - HEADACHE [None]
  - LISTLESS [None]
  - NAUSEA [None]
  - NECK PAIN [None]
  - PHLEBITIS [None]
  - WEIGHT INCREASED [None]
